FAERS Safety Report 6341698-0 (Version None)
Quarter: 2009Q3

REPORT INFORMATION
  Report Type: 
  Country: None (occurrence: None)
  Receive Date: 20090902
  Receipt Date: 20090902
  Transmission Date: 20100115
  Serious: No
  Sender: FDA-Public Use
  Company Number: None

PATIENT
  Sex: Female
  Weight: 60.6006 kg

DRUGS (1)
  1. LIPITOR [Suspect]
     Indication: LIPIDS ABNORMAL
     Dosage: 40 MG ONCE DAILY PO
     Route: 048
     Dates: start: 20080714, end: 20090709

REACTIONS (2)
  - MYOPATHY [None]
  - WHEELCHAIR USER [None]
